FAERS Safety Report 8814749 (Version 1)
Quarter: 2012Q4

REPORT INFORMATION
  Report Type: 
  Country: GB (occurrence: GB)
  Receive Date: 20120928
  Receipt Date: 20120928
  Transmission Date: 20130627
  Serious: Yes (Other)
  Sender: FDA-Public Use
  Company Number: GB-PFIZER INC-2012238539

PATIENT
  Age: 50 Year
  Sex: Female
  Weight: 160 kg

DRUGS (2)
  1. IBUPROFEN [Suspect]
     Dosage: UNK
     Route: 048
  2. MORPHINE [Concomitant]
     Indication: HYSTERECTOMY
     Dates: start: 20120814, end: 20120816

REACTIONS (3)
  - Rectal haemorrhage [Recovered/Resolved]
  - Abdominal pain upper [Recovered/Resolved]
  - Night sweats [Unknown]
